FAERS Safety Report 8501276-1 (Version None)
Quarter: 2012Q3

REPORT INFORMATION
  Report Type: 
  Country: None (occurrence: None)
  Receive Date: 20120710
  Receipt Date: 20120706
  Transmission Date: 20120928
  Serious: No
  Sender: FDA-Public Use
  Company Number: US-TEVA-347132USA

PATIENT
  Sex: Female

DRUGS (2)
  1. PROAIR HFA [Suspect]
     Indication: DYSPNOEA
     Dosage: 90 MCG, FREQUENCY UNSPECIFIED
     Dates: start: 20120419
  2. PROAIR HFA [Suspect]
     Indication: CHEST DISCOMFORT

REACTIONS (1)
  - DRUG INEFFECTIVE [None]
